FAERS Safety Report 6539991-1 (Version None)
Quarter: 2010Q1

REPORT INFORMATION
  Report Type: 
  Country: None (occurrence: None)
  Receive Date: 20100115
  Receipt Date: 20100106
  Transmission Date: 20100710
  Serious: Yes (Other)
  Sender: FDA-Public Use
  Company Number: PHHY2010JP00920

PATIENT

DRUGS (1)
  1. ZOMETA [Suspect]
     Indication: BREAST CANCER

REACTIONS (2)
  - BONE DISORDER [None]
  - OSTEONECROSIS [None]
